FAERS Safety Report 16994761 (Version 1)
Quarter: 2019Q4

REPORT INFORMATION
  Report Type: Report from Study
  Country: CA (occurrence: CA)
  Receive Date: 20191105
  Receipt Date: 20191105
  Transmission Date: 20200122
  Serious: Yes (Other)
  Sender: FDA-Public Use
  Company Number: CA-PFIZER INC-2019474102

PATIENT
  Age: 27 Year
  Sex: Female

DRUGS (5)
  1. METHOTREXATE SODIUM. [Suspect]
     Active Substance: METHOTREXATE SODIUM
     Dosage: UNK
     Route: 065
  2. COSENTYX [Suspect]
     Active Substance: SECUKINUMAB
     Indication: PSORIASIS
     Dosage: 300 MG, MONTHLY
  3. COSENTYX [Suspect]
     Active Substance: SECUKINUMAB
     Indication: PSORIATIC ARTHROPATHY
     Dosage: 300.0 MG, WEEKLY
     Route: 058
  4. ENTOCORT [Concomitant]
     Active Substance: BUDESONIDE
     Route: 065
  5. ESOMEPRAZOLE MAGNESIUM/NAPROXEN [Concomitant]
     Dosage: UNK
     Route: 065

REACTIONS (12)
  - Constipation [Unknown]
  - Weight decreased [Unknown]
  - Crohn^s disease [Unknown]
  - Diarrhoea [Unknown]
  - Scratch [Unknown]
  - Haematochezia [Unknown]
  - Insomnia [Unknown]
  - Burning sensation [Unknown]
  - Eating disorder [Unknown]
  - Injection site bruising [Unknown]
  - Pruritus [Unknown]
  - Skin plaque [Unknown]
